FAERS Safety Report 25636483 (Version 1)
Quarter: 2025Q3

REPORT INFORMATION
  Report Type: Spontaneous
  Country: US (occurrence: US)
  Receive Date: 20250804
  Receipt Date: 20250804
  Transmission Date: 20251020
  Serious: No
  Sender: AMGEN
  Company Number: US-AMGEN-USASP2025148740

PATIENT
  Sex: Female

DRUGS (3)
  1. PROLIA [Suspect]
     Active Substance: DENOSUMAB
     Indication: Bone disorder
     Dosage: UNK UNK, Q6MO
     Route: 065
  2. LUMIGAN [Concomitant]
     Active Substance: BIMATOPROST
  3. LATISSE [Concomitant]
     Active Substance: BIMATOPROST

REACTIONS (3)
  - Neck pain [Unknown]
  - Back pain [Unknown]
  - Off label use [Unknown]
